FAERS Safety Report 23302269 (Version 1)
Quarter: 2023Q4

REPORT INFORMATION
  Report Type: Spontaneous
  Country: ES (occurrence: ES)
  Receive Date: 20231215
  Receipt Date: 20231215
  Transmission Date: 20240109
  Serious: Yes (Hospitalization)
  Sender: FDA-Public Use
  Company Number: None

PATIENT
  Age: 96 Year
  Sex: Female

DRUGS (6)
  1. CARBIDOPA\LEVODOPA [Suspect]
     Active Substance: CARBIDOPA\LEVODOPA
     Indication: Parkinson^s disease
     Dosage: 1.0 TABLET EVERY 6 HOURS (100 TABLETS)
     Route: 048
     Dates: start: 20171113, end: 20230905
  2. LOSARTAN POTASSIUM [Suspect]
     Active Substance: LOSARTAN POTASSIUM
     Indication: Hypertension
     Dosage: 12.5 MG EVERY 24 HOURS
     Route: 048
     Dates: start: 20160324, end: 20230905
  3. TORSEMIDE [Suspect]
     Active Substance: TORSEMIDE
     Indication: Hypertension
     Dosage: 5.0 MG EVERY 24 HOURS
     Route: 048
     Dates: start: 20210714, end: 20230905
  4. PARACETAMOL KERN PHARMA [Concomitant]
     Indication: Back pain
     Dosage: 650.0 MG EVERY 8 HOURS (40 TABLETS)
     Route: 048
     Dates: start: 20230831
  5. LEVOTHYROXINE SODIUM [Concomitant]
     Active Substance: LEVOTHYROXINE SODIUM
     Indication: Hypothyroidism
     Dosage: 25.0 MCG BEFORE BREAKFAST (100 TABLETS)
     Route: 048
     Dates: start: 20150205
  6. QUETIAPINE FUMARATE [Concomitant]
     Active Substance: QUETIAPINE FUMARATE
     Indication: Hallucination
     Dosage: 25.0 MG BREAKFAST
     Route: 048
     Dates: start: 20230629

REACTIONS (2)
  - Hallucination, visual [Recovered/Resolved]
  - Inappropriate antidiuretic hormone secretion [Recovered/Resolved]

NARRATIVE: CASE EVENT DATE: 20230904
